FAERS Safety Report 9494978 (Version 1)
Quarter: 2013Q3

REPORT INFORMATION
  Report Type: Spontaneous
  Country: US (occurrence: None)
  Receive Date: 20130828
  Receipt Date: 20130828
  Transmission Date: 20140515
  Serious: Yes (Hospitalization)
  Sender: FDA-Public Use
  Company Number: JPI-P-026647

PATIENT
  Age: 67 Year
  Sex: Female
  Weight: 58.97 kg

DRUGS (2)
  1. XYREM [Suspect]
     Indication: HYPERSOMNIA
     Route: 048
     Dates: start: 20061207
  2. XYREM [Suspect]
     Indication: FIBROMYALGIA
     Route: 048
     Dates: start: 20061207

REACTIONS (2)
  - Hip arthroplasty [None]
  - Procedural pain [None]
